FAERS Safety Report 16084878 (Version 1)
Quarter: 2019Q2

REPORT INFORMATION
  Report Type: Spontaneous
  Country: US (occurrence: US)
  Receive Date: 20190318
  Receipt Date: 20190318
  Transmission Date: 20190711
  Serious: Yes (Disabling)
  Sender: FDA-Public Use
  Company Number: None

PATIENT
  Age: 39 Year
  Sex: Female
  Weight: 89.1 kg

DRUGS (1)
  1. DULOXETINE. [Suspect]
     Active Substance: DULOXETINE
     Indication: DEPRESSION
     Dates: start: 20160110, end: 20190318

REACTIONS (5)
  - Feeling abnormal [None]
  - Anger [None]
  - Pain [None]
  - Irritability [None]
  - Malaise [None]

NARRATIVE: CASE EVENT DATE: 20160110
